FAERS Safety Report 15539810 (Version 1)
Quarter: 2018Q4

REPORT INFORMATION
  Report Type: Report from Study
  Country: US (occurrence: US)
  Receive Date: 20181023
  Receipt Date: 20181023
  Transmission Date: 20190205
  Serious: Yes (Hospitalization)
  Sender: FDA-Public Use
  Company Number: US-ROCHE-2196128

PATIENT
  Age: 73 Year
  Sex: Female

DRUGS (7)
  1. VEMURAFENIB. [Concomitant]
     Active Substance: VEMURAFENIB
  2. BEVACIZUMAB. [Concomitant]
     Active Substance: BEVACIZUMAB
  3. LASIX [Concomitant]
     Active Substance: FUROSEMIDE
     Indication: OEDEMA
     Route: 065
  4. NAB-PACLITAXEL [Concomitant]
     Active Substance: PACLITAXEL
  5. ATEZOLIZUMAB. [Suspect]
     Active Substance: ATEZOLIZUMAB
     Indication: ANAPLASTIC THYROID CANCER
     Route: 042
     Dates: start: 20180926
  6. COBIMETINIB. [Concomitant]
     Active Substance: COBIMETINIB
  7. PACLITAXEL. [Suspect]
     Active Substance: PACLITAXEL
     Indication: ANAPLASTIC THYROID CANCER
     Route: 042
     Dates: start: 20180926

REACTIONS (2)
  - Syncope [Recovered/Resolved]
  - Dehydration [Recovering/Resolving]

NARRATIVE: CASE EVENT DATE: 20181003
